FAERS Safety Report 7507188 (Version 19)
Quarter: 2013Q1

REPORT INFORMATION
  Report Type: Spontaneous
  Country: US (occurrence: US)
  Receive Date: 20100729
  Receipt Date: 20130301
  Transmission Date: 20140127
  Serious: Yes (Hospitalization, Congenital Anomaly, Other)
  Sender: FDA-Public Use
  Company Number: US-PFIZER INC-2010092578

PATIENT
  Sex: Male
  Weight: 3.3 kg

DRUGS (13)
  1. ZOLOFT [Suspect]
     Indication: ANXIETY
     Dosage: 50 MG, 1X/DAY
     Route: 064
     Dates: start: 2006, end: 2007
  2. ZOLOFT [Suspect]
     Indication: DEPRESSION
  3. XANAX [Concomitant]
     Indication: ANXIETY
     Dosage: 0.25 MG, ? -1 TABLET 2X/DAY
     Route: 064
     Dates: start: 20060613
  4. AMBIEN [Concomitant]
     Dosage: UNK
     Route: 064
  5. PRENATAL VITAMINS [Concomitant]
     Dosage: UNK
     Route: 064
  6. ORTHO EVRA [Concomitant]
     Dosage: UNK
     Route: 064
  7. LOW-OGESTREL [Concomitant]
     Dosage: UNK
     Route: 064
  8. LO/OVRAL [Concomitant]
     Dosage: UNK
     Route: 064
  9. ALPRAZOLAM [Concomitant]
     Dosage: UNK
     Route: 064
  10. TYLENOL [Concomitant]
     Dosage: UNK
     Route: 064
  11. SENOKOT [Concomitant]
     Dosage: UNK
     Route: 064
  12. SUDAFED [Concomitant]
     Dosage: UNK
     Route: 064
  13. BENADRYL [Concomitant]
     Dosage: UNK
     Route: 064

REACTIONS (20)
  - Foetal exposure during pregnancy [Unknown]
  - Patent ductus arteriosus [Recovered/Resolved]
  - Cardiac failure congestive [Unknown]
  - Viral infection [Unknown]
  - Heart disease congenital [Recovered/Resolved]
  - Cardiomegaly [Unknown]
  - Failure to thrive [Unknown]
  - Speech disorder [Not Recovered/Not Resolved]
  - Cryptorchism [Recovering/Resolving]
  - Hypospadias [Unknown]
  - Croup infectious [Unknown]
  - Atrial septal defect [Recovering/Resolving]
  - Respiratory disorder [Unknown]
  - Prepuce redundant [Unknown]
  - Acute respiratory distress syndrome [Unknown]
  - Gastroenteritis [Unknown]
  - Dermatitis atopic [Unknown]
  - Congenital anomaly [Unknown]
  - Upper respiratory tract infection [Unknown]
  - Dermatitis contact [Unknown]
